FAERS Safety Report 10556938 (Version 2)
Quarter: 2015Q1

REPORT INFORMATION
  Report Type: Spontaneous
  Country: JP (occurrence: JP)
  Receive Date: 20141031
  Receipt Date: 20150304
  Transmission Date: 20150720
  Serious: Yes (Death, Other)
  Sender: FDA-Public Use
  Company Number: JP-ELI_LILLY_AND_COMPANY-JP201410010954

PATIENT
  Age: 84 Year
  Sex: Male

DRUGS (3)
  1. ALIMTA [Suspect]
     Active Substance: PEMETREXED DISODIUM
     Indication: LUNG ADENOCARCINOMA
     Dosage: 500 MG/M2, OTHER
     Route: 042
  2. CARBOPLATIN. [Suspect]
     Active Substance: CARBOPLATIN
     Indication: LUNG ADENOCARCINOMA
     Dosage: UNK
     Route: 042
  3. BEVACIZUMAB [Suspect]
     Active Substance: BEVACIZUMAB
     Indication: LUNG ADENOCARCINOMA
     Dosage: 15 MG/KG, UNK
     Route: 042

REACTIONS (6)
  - Platelet count decreased [Recovered/Resolved]
  - Malignant pleural effusion [Unknown]
  - Death [Fatal]
  - Nausea [Unknown]
  - White blood cell count decreased [Recovered/Resolved]
  - Performance status decreased [Unknown]
